FAERS Safety Report 6570353-7 (Version None)
Quarter: 2010Q1

REPORT INFORMATION
  Report Type: 
  Country: None (occurrence: None)
  Receive Date: 20100204
  Receipt Date: 20100127
  Transmission Date: 20100710
  Serious: Yes (Other)
  Sender: FDA-Public Use
  Company Number: US-JNJFOC-20100201164

PATIENT
  Sex: Female

DRUGS (2)
  1. MOTRIN [Suspect]
     Route: 048
  2. MOTRIN [Suspect]
     Indication: DRUG USE FOR UNKNOWN INDICATION
     Route: 048

REACTIONS (2)
  - KIDNEY PERFORATION [None]
  - PRODUCT QUALITY ISSUE [None]
